FAERS Safety Report 5036960-8 (Version None)
Quarter: 2006Q2

REPORT INFORMATION
  Report Type: 
  Country: None (occurrence: None)
  Receive Date: 20060626
  Receipt Date: 20060609
  Transmission Date: 20061013
  Serious: Yes (Hospitalization)
  Sender: FDA-Public Use
  Company Number: GBR-2006-0002232

PATIENT
  Age: 66 Year
  Sex: Female

DRUGS (4)
  1. OXYNORM(OXYCODONE HYDROCHLORIDE) UNKNOWN [Suspect]
     Indication: DRUG USE FOR UNKNOWN INDICATION
     Dosage: ORAL
     Route: 048
     Dates: start: 20040701
  2. ABSENOR(VALPROIC ACID) [Suspect]
     Indication: EPILEPSY
     Dosage: 300 MG, DAILY, ORAL
     Route: 048
     Dates: start: 20040601
  3. FENANTOIN (PHENYTOIN) [Concomitant]
  4. SOBRIL (OXAZEPAM) [Concomitant]

REACTIONS (6)
  - BLISTER [None]
  - COAGULOPATHY [None]
  - SKIN INFLAMMATION [None]
  - SKIN NECROSIS [None]
  - SKIN REACTION [None]
  - THERMAL BURN [None]
